FAERS Safety Report 25329639 (Version 1)
Quarter: 2025Q2

REPORT INFORMATION
  Report Type: Spontaneous
  Country: US (occurrence: US)
  Receive Date: 20250519
  Receipt Date: 20250519
  Transmission Date: 20250717
  Serious: No
  Sender: DR REDDYS
  Company Number: US-DRL-USA-USA/2025/05/006867

PATIENT
  Age: 17 Year

DRUGS (2)
  1. ACCUTANE [Suspect]
     Active Substance: ISOTRETINOIN
     Indication: Product used for unknown indication
     Route: 065
  2. ACCUTANE [Suspect]
     Active Substance: ISOTRETINOIN
     Route: 065

REACTIONS (6)
  - Tympanic membrane hyperaemia [Unknown]
  - Tinnitus [Unknown]
  - Headache [Unknown]
  - Incorrect dose administered [Unknown]
  - Product availability issue [Unknown]
  - Product dispensing error [Unknown]

NARRATIVE: CASE EVENT DATE: 20250502
